FAERS Safety Report 19151869 (Version 1)
Quarter: 2021Q2

REPORT INFORMATION
  Report Type: Spontaneous
  Country: US (occurrence: US)
  Receive Date: 20210416
  Receipt Date: 20210416
  Transmission Date: 20210717
  Serious: Yes (Hospitalization)
  Sender: FDA-Public Use
  Company Number: None

PATIENT
  Sex: Female

DRUGS (9)
  1. LUMIGAN [Concomitant]
     Active Substance: BIMATOPROST
  2. TIMOLOL MAL [Concomitant]
  3. POT CL MICRO CR [Concomitant]
  4. PRENATAL [Concomitant]
     Active Substance: VITAMINS
  5. METOPROL TAR [Concomitant]
  6. ESBRIET [Suspect]
     Active Substance: PIRFENIDONE
     Indication: IDIOPATHIC PULMONARY FIBROSIS
     Route: 048
     Dates: start: 20200131
  7. ASPIRIN. [Concomitant]
     Active Substance: ASPIRIN
  8. ELIQUIS [Concomitant]
     Active Substance: APIXABAN
  9. ATORVASTATIN [Concomitant]
     Active Substance: ATORVASTATIN

REACTIONS (2)
  - Visual impairment [None]
  - Pneumonia [None]
